FAERS Safety Report 14969350 (Version 1)
Quarter: 2018Q2

REPORT INFORMATION
  Report Type: Spontaneous
  Country: US (occurrence: US)
  Receive Date: 20180604
  Receipt Date: 20180604
  Transmission Date: 20180711
  Serious: No
  Sender: FDA-Public Use
  Company Number: US-DUSA PHARMACEUTICALS, INC.-2048936

PATIENT
  Age: 45 Year
  Sex: Female

DRUGS (1)
  1. LEVULAN KERASTICK [Suspect]
     Active Substance: AMINOLEVULINIC ACID HYDROCHLORIDE
     Indication: ACTINIC KERATOSIS
     Route: 061
     Dates: start: 20171103, end: 20171103

REACTIONS (7)
  - Drug ineffective [Unknown]
  - Skin hyperpigmentation [Unknown]
  - Rash macular [Unknown]
  - Application site pain [Unknown]
  - Scab [Unknown]
  - Photophobia [Not Recovered/Not Resolved]
  - Erythema [Unknown]
